FAERS Safety Report 10401604 (Version 3)
Quarter: 2014Q3

REPORT INFORMATION
  Report Type: Spontaneous
  Country: JP (occurrence: JP)
  Receive Date: 20140822
  Receipt Date: 20140828
  Transmission Date: 20150326
  Serious: Yes (Death)
  Sender: FDA-Public Use
  Company Number: PHHY2014JP103989

PATIENT

DRUGS (1)
  1. SANDOSTATIN [Suspect]
     Active Substance: OCTREOTIDE ACETATE
     Indication: GASTROINTESTINAL OBSTRUCTION
     Dosage: 300 UG, DAILY
     Route: 058

REACTIONS (3)
  - Neoplasm malignant [Fatal]
  - Gastrointestinal obstruction [Fatal]
  - Condition aggravated [Fatal]
